APPROVED DRUG PRODUCT: FEXOFENADINE HYDROCHLORIDE AND PSEUDOEPHEDRINE HYDROCHLORIDE
Active Ingredient: FEXOFENADINE HYDROCHLORIDE; PSEUDOEPHEDRINE HYDROCHLORIDE
Strength: 60MG;120MG
Dosage Form/Route: TABLET, EXTENDED RELEASE;ORAL
Application: A090818 | Product #001
Applicant: SUN PHARMACEUTICAL INDUSTRIES LTD
Approved: Jan 29, 2015 | RLD: No | RS: No | Type: OTC